FAERS Safety Report 5110359-8 (Version None)
Quarter: 2006Q3

REPORT INFORMATION
  Report Type: 
  Country: None (occurrence: None)
  Receive Date: 20060731
  Receipt Date: 20060614
  Transmission Date: 20061208
  Serious: No
  Sender: FDA-Public Use
  Company Number: 2006PV015635

PATIENT
  Age: 64 Year
  Sex: Female
  Weight: 80.7403 kg

DRUGS (7)
  1. BYETTA [Suspect]
     Indication: DIABETES MELLITUS NON-INSULIN-DEPENDENT
     Dosage: 5 MCG;BID;SC
     Route: 058
     Dates: start: 20060614
  2. METFORMIN HCL [Concomitant]
  3. GLIPIZIDE [Concomitant]
  4. DIAZIDE [Concomitant]
  5. GLIPIZIDE [Concomitant]
  6. LISINOPRIL [Concomitant]
  7. TENORMIN [Concomitant]

REACTIONS (3)
  - ACCIDENTAL NEEDLE STICK [None]
  - NAUSEA [None]
  - VOMITING [None]
